FAERS Safety Report 10472866 (Version 2)
Quarter: 2015Q3

REPORT INFORMATION
  Report Type: Report from Study
  Country: US (occurrence: US)
  Receive Date: 20140924
  Receipt Date: 20150710
  Transmission Date: 20151125
  Serious: Yes (Hospitalization)
  Sender: FDA-Public Use
  Company Number: US-ALEXION PHARMACEUTICALS INC-A201403628

PATIENT

DRUGS (1)
  1. SOLIRIS [Suspect]
     Active Substance: ECULIZUMAB
     Indication: PAROXYSMAL NOCTURNAL HAEMOGLOBINURIA
     Route: 042

REACTIONS (8)
  - Abdominal pain [Recovered/Resolved]
  - Musculoskeletal pain [Unknown]
  - Diarrhoea [Not Recovered/Not Resolved]
  - Nausea [Not Recovered/Not Resolved]
  - Upper respiratory tract infection [Recovered/Resolved]
  - Rotator cuff syndrome [Unknown]
  - Paraesthesia [Unknown]
  - Headache [Unknown]

NARRATIVE: CASE EVENT DATE: 20140908
